FAERS Safety Report 6664737-6 (Version None)
Quarter: 2010Q1

REPORT INFORMATION
  Report Type: 
  Country: None (occurrence: None)
  Receive Date: 20100330
  Receipt Date: 20100318
  Transmission Date: 20100710
  Serious: Yes (Other)
  Sender: FDA-Public Use
  Company Number: 2010AP000125

PATIENT
  Age: 27 Year
  Sex: Female

DRUGS (1)
  1. RANITIDINE HYDROCHLORIDE [Suspect]
     Indication: DYSPEPSIA
     Dosage: 600 MG;TAB;PO;QD
     Route: 048
     Dates: start: 20091104, end: 20091120

REACTIONS (6)
  - CONFUSIONAL STATE [None]
  - CONSTIPATION [None]
  - HEADACHE [None]
  - NAUSEA [None]
  - PERIPHERAL VASCULAR DISORDER [None]
  - PYREXIA [None]
